FAERS Safety Report 8392948-0 (Version None)
Quarter: 2012Q2

REPORT INFORMATION
  Report Type: 
  Country: None (occurrence: None)
  Receive Date: 20120529
  Receipt Date: 20120515
  Transmission Date: 20120825
  Serious: Yes (Hospitalization, Other)
  Sender: FDA-Public Use
  Company Number: US-MYLANLABS-2009AL004421

PATIENT
  Sex: Male
  Weight: 79.61 kg

DRUGS (66)
  1. GLIPIZIDE [Concomitant]
  2. POTASSIUM CHLORIDE [Concomitant]
  3. ROCEPHIN [Concomitant]
     Route: 030
  4. GLUCOPHAGE [Concomitant]
  5. BACTRIM [Concomitant]
  6. LEVAQUIN [Concomitant]
     Indication: BRONCHITIS
  7. ZOCOR [Concomitant]
  8. PRILOSEC [Concomitant]
  9. TOPROL-XL [Concomitant]
  10. THEO-DUR [Concomitant]
  11. LISINOPRIL [Concomitant]
  12. VITAMIN B-12 [Concomitant]
  13. CRESTOR [Concomitant]
  14. CLARINEX /01202601/ [Concomitant]
  15. METFORMIN HCL [Concomitant]
  16. INSULIN [Concomitant]
     Dosage: SLIDING SCALE PRN
  17. ISORDIL [Concomitant]
  18. PROPOFOL [Concomitant]
     Route: 042
  19. NICOTINE [Concomitant]
  20. DOXYCYCLINE [Concomitant]
  21. LASIX [Concomitant]
  22. DIGOXIN [Suspect]
     Indication: PRODUCT USED FOR UNKNOWN INDICATION
     Route: 048
     Dates: start: 20051104, end: 20080918
  23. KEFLEX [Concomitant]
  24. NICOTINE [Concomitant]
  25. MICRONASE [Concomitant]
  26. VANCOMYCIN [Concomitant]
  27. NITROSTAT [Concomitant]
  28. ATROVENT [Concomitant]
  29. FLAGYL [Concomitant]
  30. ASACOL [Concomitant]
  31. ANCEF /00288502/ [Concomitant]
     Route: 042
  32. MEDROL [Concomitant]
  33. TUSSIONEX /00004701/ [Concomitant]
  34. LOMOTIL [Concomitant]
  35. XYZAL [Concomitant]
  36. FUROSEMIDE [Concomitant]
  37. GLUCOTROL [Concomitant]
  38. PRAVACHOL [Concomitant]
  39. CIPROFLOXACIN HCL [Concomitant]
  40. MYLANTA [Concomitant]
  41. HYTRIN [Concomitant]
  42. INFLUENZA VACCINE [Concomitant]
  43. COMBIVENT [Concomitant]
  44. AUGMENTIN [Concomitant]
  45. NEXIUM [Concomitant]
  46. ANTIVERT [Concomitant]
     Indication: DIZZINESS
  47. PROSCAR [Concomitant]
  48. DOXAZOSIN MESYLATE [Concomitant]
  49. HYZAAR [Concomitant]
  50. ZYRTEC [Concomitant]
  51. GLUTARAL [Concomitant]
  52. ANUSOL HC [Concomitant]
  53. METOPROLOL TARTRATE [Concomitant]
  54. LOPID [Concomitant]
  55. RIFAMPIN [Concomitant]
  56. FENTANYL-100 [Concomitant]
     Route: 042
  57. ANTIBIOTICS [Concomitant]
  58. ALBUTEROL SULFATE [Concomitant]
  59. LACTOBACILLUS [Concomitant]
  60. ASPIRIN [Concomitant]
  61. PLAVIX [Concomitant]
  62. AVODART [Concomitant]
  63. FLOMAX [Concomitant]
  64. THEOPHYLLINE [Concomitant]
  65. ALBUTEROL SULFATE [Concomitant]
  66. VERSED [Concomitant]
     Route: 042

REACTIONS (99)
  - COUGH [None]
  - WHEEZING [None]
  - NASAL CONGESTION [None]
  - DECREASED APPETITE [None]
  - PYREXIA [None]
  - BLOOD PRESSURE DECREASED [None]
  - BLADDER OBSTRUCTION [None]
  - DISCOMFORT [None]
  - LIMB INJURY [None]
  - VENTRICULAR TACHYCARDIA [None]
  - ANGINA PECTORIS [None]
  - CONSTIPATION [None]
  - LOWER URINARY TRACT SYMPTOMS [None]
  - NOCTURIA [None]
  - PROSTATE INFECTION [None]
  - SPINAL OSTEOARTHRITIS [None]
  - PULMONARY EMBOLISM [None]
  - DIZZINESS [None]
  - HYPERLIPIDAEMIA [None]
  - HEART RATE IRREGULAR [None]
  - HYPERTENSION [None]
  - DYSARTHRIA [None]
  - ARTHRALGIA [None]
  - ARTERIOSCLEROSIS [None]
  - CHRONIC OBSTRUCTIVE PULMONARY DISEASE [None]
  - ELECTROCARDIOGRAM ABNORMAL [None]
  - HAEMORRHOIDS [None]
  - POLYGLANDULAR DISORDER [None]
  - PULMONARY MASS [None]
  - SUPRAVENTRICULAR TACHYCARDIA [None]
  - URINARY HESITATION [None]
  - ASTHENIA [None]
  - BRONCHITIS [None]
  - DISEASE RECURRENCE [None]
  - CARDIAC FAILURE CONGESTIVE [None]
  - ANORECTAL DISCOMFORT [None]
  - LABORATORY TEST ABNORMAL [None]
  - CARDIOMEGALY [None]
  - CHEST X-RAY ABNORMAL [None]
  - PHARYNGITIS [None]
  - SUPRAPUBIC PAIN [None]
  - TREATMENT NONCOMPLIANCE [None]
  - CHEST DISCOMFORT [None]
  - DYSPNOEA [None]
  - WEIGHT DECREASED [None]
  - RHONCHI [None]
  - PAIN [None]
  - BENIGN PROSTATIC HYPERPLASIA [None]
  - CARDIAC STRESS TEST ABNORMAL [None]
  - EMPHYSEMA [None]
  - PNEUMOCONIOSIS [None]
  - PULMONARY VASCULAR DISORDER [None]
  - UPPER-AIRWAY COUGH SYNDROME [None]
  - BACK PAIN [None]
  - OROPHARYNGEAL PAIN [None]
  - ABDOMINAL PAIN UPPER [None]
  - CORONARY ARTERY DISEASE [None]
  - ARRHYTHMIA [None]
  - BLOOD PRESSURE FLUCTUATION [None]
  - HEADACHE [None]
  - OTITIS MEDIA [None]
  - SINUSITIS [None]
  - PROSTATIC DISORDER [None]
  - VOMITING [None]
  - DIARRHOEA [None]
  - CARDIAC MURMUR [None]
  - PRESYNCOPE [None]
  - PALPITATIONS [None]
  - HYPOAESTHESIA [None]
  - DEHYDRATION [None]
  - INSOMNIA [None]
  - LEFT ATRIAL DILATATION [None]
  - NOCTURNAL DYSPNOEA [None]
  - PROSTATITIS [None]
  - REFUSAL OF TREATMENT BY PATIENT [None]
  - TOBACCO ABUSE [None]
  - ISCHAEMIC CARDIOMYOPATHY [None]
  - DEVICE MALFUNCTION [None]
  - PRODUCTIVE COUGH [None]
  - DYSURIA [None]
  - DIABETES MELLITUS [None]
  - LEFT VENTRICULAR HYPERTROPHY [None]
  - MALAISE [None]
  - PAIN IN EXTREMITY [None]
  - POLLAKIURIA [None]
  - SUPRAVENTRICULAR EXTRASYSTOLES [None]
  - VENTRICULAR EXTRASYSTOLES [None]
  - WANDERING PACEMAKER [None]
  - TRANSIENT ISCHAEMIC ATTACK [None]
  - INGUINAL HERNIA [None]
  - BLOOD PRESSURE INCREASED [None]
  - RENAL FAILURE [None]
  - DIVERTICULITIS [None]
  - ABDOMINAL PAIN LOWER [None]
  - ATRIOVENTRICULAR BLOCK FIRST DEGREE [None]
  - EXTRASYSTOLES [None]
  - HYPERCHOLESTEROLAEMIA [None]
  - LEFT VENTRICULAR DYSFUNCTION [None]
  - PROSTATE EXAMINATION ABNORMAL [None]
